FAERS Safety Report 5531970-6 (Version None)
Quarter: 2007Q4

REPORT INFORMATION
  Report Type: 
  Country: None (occurrence: None)
  Receive Date: 20071128
  Receipt Date: 20071128
  Transmission Date: 20080405
  Serious: Yes (Other)
  Sender: FDA-Public Use
  Company Number: None

PATIENT
  Age: 52 Year
  Sex: Female
  Weight: 77.1115 kg

DRUGS (2)
  1. NEXIUM [Suspect]
     Indication: DYSPEPSIA
     Dosage: 1 DAILY BY MOUTH
     Route: 048
     Dates: start: 20070802, end: 20070915
  2. NEXIUM [Suspect]
     Indication: HIATUS HERNIA
     Dosage: 1 DAILY BY MOUTH
     Route: 048
     Dates: start: 20070802, end: 20070915

REACTIONS (2)
  - CONFUSIONAL STATE [None]
  - IMPAIRED DRIVING ABILITY [None]
